FAERS Safety Report 23186119 (Version 2)
Quarter: 2024Q1

REPORT INFORMATION
  Report Type: Spontaneous
  Country: US (occurrence: US)
  Receive Date: 20231115
  Receipt Date: 20240115
  Transmission Date: 20240409
  Serious: Yes (Other)
  Sender: FDA-Public Use
  Company Number: US-BRISTOL-MYERS SQUIBB COMPANY-2023-163153

PATIENT
  Age: 47 Year
  Sex: Male
  Weight: 94.35 kg

DRUGS (2)
  1. LENALIDOMIDE [Suspect]
     Active Substance: LENALIDOMIDE
     Indication: Plasma cell myeloma
     Dosage: FREQUENCY: 10
     Route: 048
     Dates: start: 20231017, end: 20231109
  2. REVLIMID [Suspect]
     Active Substance: LENALIDOMIDE
     Indication: Plasma cell myeloma
     Route: 048

REACTIONS (7)
  - Nausea [Not Recovered/Not Resolved]
  - Rash [Unknown]
  - Full blood count abnormal [Unknown]
  - Muscle spasms [Unknown]
  - Rash erythematous [Unknown]
  - Rash pruritic [Unknown]
  - Abdominal pain [Unknown]

NARRATIVE: CASE EVENT DATE: 20231101
